FAERS Safety Report 6519451-4 (Version None)
Quarter: 2009Q4

REPORT INFORMATION
  Report Type: 
  Country: None (occurrence: None)
  Receive Date: 20091228
  Receipt Date: 20091217
  Transmission Date: 20100525
  Serious: Yes (Other)
  Sender: FDA-Public Use
  Company Number: US-TEVA-216712USA

PATIENT
  Sex: Male

DRUGS (3)
  1. CLARAVIS [Suspect]
     Route: 048
  2. FISH OIL [Concomitant]
  3. VITAMINS [Concomitant]

REACTIONS (3)
  - ANGER [None]
  - DEPRESSION [None]
  - SUICIDAL IDEATION [None]
